FAERS Safety Report 12120951 (Version 1)
Quarter: 2016Q1

REPORT INFORMATION
  Report Type: Spontaneous
  Country: US (occurrence: US)
  Receive Date: 20160226
  Receipt Date: 20160226
  Transmission Date: 20160526
  Serious: No
  Sender: FDA-Public Use
  Company Number: US-ALLERGAN-1203491US

PATIENT
  Age: 74 Year
  Sex: Female

DRUGS (2)
  1. REFRESH OPTIVE [Suspect]
     Active Substance: CARBOXYMETHYLCELLULOSE SODIUM\GLYCERIN
     Indication: PRODUCT USED FOR UNKNOWN INDICATION
     Dosage: 2 GTT, PRN
     Route: 047
  2. UNSPECIFIED CONTACT SOLUTION [Concomitant]
     Indication: CORRECTIVE LENS USER
     Dosage: UNK
     Route: 047

REACTIONS (2)
  - Wrong technique in product usage process [Unknown]
  - Eye complication associated with device [Unknown]
